FAERS Safety Report 24048742 (Version 2)
Quarter: 2024Q3

REPORT INFORMATION
  Report Type: Report from Study
  Country: CA (occurrence: CA)
  Receive Date: 20240704
  Receipt Date: 20240704
  Transmission Date: 20241017
  Serious: Yes (Other)
  Sender: GLAXOSMITHKLINE
  Company Number: CA-GLAXOSMITHKLINE-CA2024057833

PATIENT
  Age: 58 Year
  Sex: Female

DRUGS (3)
  1. MEPOLIZUMAB [Suspect]
     Active Substance: MEPOLIZUMAB
     Indication: Asthma
     Dosage: 100 MG, Q4W
     Route: 058
     Dates: start: 20240506
  2. INDACATEROL ACETATE\MOMETASONE FUROATE [Concomitant]
     Active Substance: INDACATEROL ACETATE\MOMETASONE FUROATE
     Indication: Product used for unknown indication
     Dosage: BEFORE FOR 2 YEARS
  3. VENTOLIN [Concomitant]
     Active Substance: ALBUTEROL SULFATE
     Indication: Product used for unknown indication
     Dosage: UNK

REACTIONS (15)
  - Asthmatic crisis [Recovering/Resolving]
  - Dysgeusia [Unknown]
  - Dizziness [Not Recovered/Not Resolved]
  - Asthma [Recovering/Resolving]
  - Dyspnoea [Recovered/Resolved]
  - Fatigue [Not Recovered/Not Resolved]
  - Headache [Not Recovered/Not Resolved]
  - Swollen tongue [Recovered/Resolved]
  - Mouth swelling [Recovered/Resolved]
  - Peripheral swelling [Recovered/Resolved]
  - Somnolence [Unknown]
  - Rhinorrhoea [Unknown]
  - Ocular hyperaemia [Unknown]
  - Eye irritation [Unknown]
  - Chest pain [Recovered/Resolved]

NARRATIVE: CASE EVENT DATE: 20240501
